FAERS Safety Report 7408316-1 (Version None)
Quarter: 2011Q2

REPORT INFORMATION
  Report Type: 
  Country: None (occurrence: None)
  Receive Date: 20110412
  Receipt Date: 20110401
  Transmission Date: 20111010
  Serious: Yes (Hospitalization)
  Sender: FDA-Public Use
  Company Number: DE-NOVOPROD-312992

PATIENT
  Sex: Female
  Weight: 40.8 kg

DRUGS (4)
  1. NOVORAPID FLEXPEN [Suspect]
     Indication: TYPE 1 DIABETES MELLITUS
     Dosage: 30 IU, QD
     Route: 058
     Dates: start: 20100808
  2. ACTRAPID HM(GE) [Suspect]
     Indication: TYPE 1 DIABETES MELLITUS
     Dosage: 12 IU, QD
     Route: 058
     Dates: start: 20100807, end: 20100808
  3. IDEGASP 30 PENFILL [Suspect]
     Indication: TYPE 1 DIABETES MELLITUS
     Dosage: 20 IU, SINGLE
     Route: 058
     Dates: start: 20100807, end: 20100807
  4. INSULATARD FLEXPEN HM(GE) [Suspect]
     Indication: TYPE 1 DIABETES MELLITUS
     Dosage: 2 IU, QD
     Route: 058
     Dates: start: 20100808, end: 20100808

REACTIONS (1)
  - NASOPHARYNGITIS [None]
